FAERS Safety Report 4949005-2 (Version None)
Quarter: 2006Q1

REPORT INFORMATION
  Report Type: 
  Country: None (occurrence: None)
  Receive Date: 20060316
  Receipt Date: 20060303
  Transmission Date: 20060701
  Serious: Yes (Other)
  Sender: FDA-Public Use
  Company Number: 2006032630

PATIENT
  Age: 75 Year
  Sex: Female
  Weight: 55.3388 kg

DRUGS (5)
  1. CAMPTOSAR [Suspect]
     Indication: BREAST CANCER
     Dosage: 97 MG (97 MG, CYCLIC)
     Dates: start: 20060127
  2. ALDACTONE [Suspect]
     Indication: ASCITES
     Dates: start: 20050301, end: 20060302
  3. XELODA [Concomitant]
  4. COMPAZINE [Concomitant]
  5. POTASSIUM [Concomitant]

REACTIONS (11)
  - ASCITES [None]
  - ASTHENIA [None]
  - BLOOD BILIRUBIN INCREASED [None]
  - DIARRHOEA [None]
  - HEPATOTOXICITY [None]
  - JAUNDICE [None]
  - LETHARGY [None]
  - METASTASES TO GASTROINTESTINAL TRACT [None]
  - METASTASES TO LIVER [None]
  - PLATELET COUNT DECREASED [None]
  - PYREXIA [None]
